FAERS Safety Report 17417151 (Version 1)
Quarter: 2020Q1

REPORT INFORMATION
  Report Type: Spontaneous
  Country: FR (occurrence: FR)
  Receive Date: 20200214
  Receipt Date: 20200214
  Transmission Date: 20200409
  Serious: Yes (Hospitalization)
  Sender: FDA-Public Use
  Company Number: FR-SUN PHARMACEUTICAL INDUSTRIES LTD-2020RR-236642

PATIENT
  Age: 14 Year
  Sex: Female
  Weight: 46 kg

DRUGS (4)
  1. DESLORATADINE. [Suspect]
     Active Substance: DESLORATADINE
     Indication: POISONING DELIBERATE
     Dosage: QUANTIT? PRISE SELON LA PATIENTE (NON AV?R?E)
     Route: 048
     Dates: start: 20200106, end: 20200106
  2. CHLORHYDRATE D^HYDROXYZINE [Suspect]
     Active Substance: HYDROXYZINE HYDROCHLORIDE
     Indication: POISONING DELIBERATE
     Dosage: QUANTIT? PRISE SELON LA PATIENTE (NON AV?R?E)
     Route: 048
     Dates: start: 20200106, end: 20200106
  3. TRAMADOL. [Suspect]
     Active Substance: TRAMADOL
     Indication: POISONING DELIBERATE
     Dosage: QUANTIT? PRISE SELON LA PATIENTE (NON AV?R?E)
     Route: 048
     Dates: start: 20200106, end: 20200106
  4. PARACETAMOL [Suspect]
     Active Substance: ACETAMINOPHEN
     Indication: POISONING DELIBERATE
     Dosage: QUANTIT? PRISE SELON LA PATIENTE (NON AV?R?E)
     Route: 048
     Dates: start: 20200106, end: 20200106

REACTIONS (3)
  - Vomiting [Recovered/Resolved]
  - Somnolence [Recovered/Resolved]
  - Metabolic acidosis [Recovered/Resolved]

NARRATIVE: CASE EVENT DATE: 20200106
